FAERS Safety Report 11637720 (Version 1)
Quarter: 2015Q4

REPORT INFORMATION
  Report Type: Spontaneous
  Country: DK (occurrence: GB)
  Receive Date: 20151016
  Receipt Date: 20151016
  Transmission Date: 20160304
  Serious: Yes (Other)
  Sender: FDA-Public Use
  Company Number: GB-FRI-1000080285

PATIENT
  Age: 37 Year
  Sex: Female
  Weight: 76.65 kg

DRUGS (3)
  1. ESCITALOPRAM [Suspect]
     Active Substance: ESCITALOPRAM OXALATE
     Indication: PREMENSTRUAL DYSPHORIC DISORDER
     Route: 048
     Dates: end: 20150705
  2. PROPRANOLOL [Suspect]
     Active Substance: PROPRANOLOL\PROPRANOLOL HYDROCHLORIDE
     Indication: PREMENSTRUAL DYSPHORIC DISORDER
     Route: 065
     Dates: end: 20150705
  3. SELINCRO [Concomitant]
     Active Substance: NALMEFENE HYDROCHLORIDE DIHYDRATE
     Indication: BINGE DRINKING
     Dosage: ONE TABLET DAILY AS REQUIRED
     Route: 048
     Dates: start: 20150705, end: 20150705

REACTIONS (7)
  - Feeling abnormal [Recovered/Resolved]
  - Insomnia [Recovered/Resolved]
  - Tachyphrenia [Unknown]
  - Product use issue [Unknown]
  - Withdrawal syndrome [Unknown]
  - Anxiety [Recovered/Resolved]
  - Paranoia [Recovered/Resolved]

NARRATIVE: CASE EVENT DATE: 20150705
